FAERS Safety Report 25166863 (Version 1)
Quarter: 2025Q2

REPORT INFORMATION
  Report Type: Spontaneous
  Country: ZM (occurrence: ZM)
  Receive Date: 20250407
  Receipt Date: 20250407
  Transmission Date: 20250717
  Serious: Yes (Death, Life-Threatening, Other)
  Sender: PFIZER
  Company Number: ZM-PFIZER INC-202500072574

PATIENT
  Sex: Male

DRUGS (4)
  1. MEROPENEM [Suspect]
     Active Substance: MEROPENEM
     Indication: Klebsiella sepsis
     Dosage: 105MG IV TDS
     Route: 042
  2. SPIRONOLACTONE [Concomitant]
     Active Substance: SPIRONOLACTONE
     Indication: Congenital cardiovascular anomaly
     Dosage: 2.5 MG PO BD
     Route: 048
  3. HYDROCHLOROTHIAZIDE [Concomitant]
     Active Substance: HYDROCHLOROTHIAZIDE
     Indication: Congenital cardiovascular anomaly
     Dosage: 3 MG PO BD
     Route: 048
  4. OXYGEN [Concomitant]
     Active Substance: OXYGEN
     Route: 045

REACTIONS (2)
  - Drug ineffective [Fatal]
  - Off label use [Unknown]
